FAERS Safety Report 8175902-3 (Version None)
Quarter: 2012Q1

REPORT INFORMATION
  Report Type: 
  Country: None (occurrence: None)
  Receive Date: 20120228
  Receipt Date: 20120207
  Transmission Date: 20120608
  Serious: Yes (Hospitalization)
  Sender: FDA-Public Use
  Company Number: JPI-P-002633

PATIENT
  Age: 62 Year
  Sex: Male

DRUGS (8)
  1. ACARBOSE [Concomitant]
  2. PIOGLITAZONE [Concomitant]
  3. XYREM [Suspect]
     Indication: DYSSOMNIA
     Dosage: SEE IMAGE
     Route: 048
     Dates: end: 20091009
  4. XYREM [Suspect]
     Indication: NARCOLEPSY
     Dosage: SEE IMAGE
     Route: 048
     Dates: end: 20091009
  5. XYREM [Suspect]
     Indication: DYSSOMNIA
     Dosage: SEE IMAGE
     Route: 048
     Dates: start: 20091020
  6. XYREM [Suspect]
     Indication: NARCOLEPSY
     Dosage: SEE IMAGE
     Route: 048
     Dates: start: 20091020
  7. XYREM [Suspect]
     Indication: DYSSOMNIA
     Dosage: SEE IMAGE
     Route: 048
     Dates: start: 20070927
  8. XYREM [Suspect]
     Indication: NARCOLEPSY
     Dosage: SEE IMAGE
     Route: 048
     Dates: start: 20070927

REACTIONS (6)
  - PRURITUS [None]
  - ORTHOPEDIC PROCEDURE [None]
  - MUSCLE SPASMS [None]
  - SLEEP APNOEA SYNDROME [None]
  - DRY SKIN [None]
  - MIDDLE INSOMNIA [None]
